FAERS Safety Report 15181879 (Version 1)
Quarter: 2018Q3

REPORT INFORMATION
  Report Type: Spontaneous
  Country: US (occurrence: US)
  Receive Date: 20180723
  Receipt Date: 20180723
  Transmission Date: 20181010
  Serious: No
  Sender: FDA-Public Use
  Company Number: US-GLAXOSMITHKLINE-US2018GSK125348

PATIENT
  Sex: Female

DRUGS (1)
  1. BENLYSTA [Suspect]
     Active Substance: BELIMUMAB
     Indication: SYSTEMIC LUPUS ERYTHEMATOSUS
     Dosage: UNK UNK, QD (EVERYDAY 7 DAYS)
     Route: 042

REACTIONS (5)
  - Dizziness [Unknown]
  - Nodule [Unknown]
  - Hypoaesthesia [Unknown]
  - Middle ear effusion [Unknown]
  - Vomiting [Unknown]
